FAERS Safety Report 6662390-9 (Version None)
Quarter: 2010Q1

REPORT INFORMATION
  Report Type: 
  Country: None (occurrence: None)
  Receive Date: 20100331
  Receipt Date: 20100318
  Transmission Date: 20100710
  Serious: Yes (Other)
  Sender: FDA-Public Use
  Company Number: US-ELI_LILLY_AND_COMPANY-US201003005663

PATIENT
  Sex: Male

DRUGS (2)
  1. CYMBALTA [Suspect]
     Indication: DEPRESSION
     Dosage: 60 MG, UNK
     Dates: start: 20100316, end: 20100316
  2. LORTAB [Concomitant]

REACTIONS (13)
  - ABASIA [None]
  - ABDOMINAL DISCOMFORT [None]
  - CRYING [None]
  - DEFAECATION URGENCY [None]
  - DIZZINESS [None]
  - DYSPNOEA [None]
  - EATING DISORDER [None]
  - FEELING ABNORMAL [None]
  - HOT FLUSH [None]
  - MUSCLE SPASMS [None]
  - SPEECH DISORDER [None]
  - TREMOR [None]
  - VOMITING [None]
